FAERS Safety Report 10771945 (Version 1)
Quarter: 2015Q1

REPORT INFORMATION
  Report Type: Spontaneous
  Country: US (occurrence: US)
  Receive Date: 20150206
  Receipt Date: 20150206
  Transmission Date: 20150721
  Serious: No
  Sender: FDA-Public Use
  Company Number: US-FRI-1000074157

PATIENT
  Age: 52 Year
  Sex: Female

DRUGS (1)
  1. SAPHRIS [Suspect]
     Active Substance: ASENAPINE MALEATE
     Indication: BIPOLAR DISORDER
     Dosage: 1 TABLET IN MORNING AND 3 AT NIGHT
     Dates: start: 201107

REACTIONS (2)
  - Intentional product misuse [Recovered/Resolved]
  - Hypersensitivity [Unknown]
